FAERS Safety Report 9565224 (Version 1)
Quarter: 2013Q3

REPORT INFORMATION
  Report Type: Spontaneous
  Country: US (occurrence: US)
  Receive Date: 20130930
  Receipt Date: 20130930
  Transmission Date: 20140515
  Serious: No
  Sender: FDA-Public Use
  Company Number: US-VIIV HEALTHCARE LIMITED-A1028866A

PATIENT
  Age: 30 Year
  Sex: Male

DRUGS (1)
  1. EPZICOM [Suspect]
     Indication: PRODUCT USED FOR UNKNOWN INDICATION
     Route: 065
     Dates: start: 20121229, end: 20130321

REACTIONS (1)
  - Adverse drug reaction [Unknown]
